FAERS Safety Report 6167230-2 (Version None)
Quarter: 2009Q2

REPORT INFORMATION
  Report Type: 
  Country: None (occurrence: None)
  Receive Date: 20090423
  Receipt Date: 20090409
  Transmission Date: 20091009
  Serious: Yes (Hospitalization)
  Sender: FDA-Public Use
  Company Number: MOZO-1000125

PATIENT
  Age: 51 Year
  Sex: Female
  Weight: 58.1 kg

DRUGS (10)
  1. MOZOBIL [Suspect]
     Indication: HAEMATOPOIETIC STEM CELL MOBILISATION
     Dosage: 14 MG, QD, SUBCUTANEOUS
     Route: 058
     Dates: start: 20081110, end: 20081112
  2. MOZOBIL [Suspect]
     Indication: NON-HODGKIN'S LYMPHOMA
     Dosage: 14 MG, QD, SUBCUTANEOUS
     Route: 058
     Dates: start: 20081110, end: 20081112
  3. MOZOBIL [Suspect]
     Indication: HAEMATOPOIETIC STEM CELL MOBILISATION
     Dosage: 14 MG, QD, SUBCUTANEOUS
     Route: 058
     Dates: start: 20081114, end: 20081114
  4. MOZOBIL [Suspect]
     Indication: NON-HODGKIN'S LYMPHOMA
     Dosage: 14 MG, QD, SUBCUTANEOUS
     Route: 058
     Dates: start: 20081114, end: 20081114
  5. GRANULOCYTE COLONY STIMULATING FACTOR (GRANULOCYTE COLONY STIMULATING [Concomitant]
  6. DAPSONE [Concomitant]
  7. LEUCOVORIN CALCIUM [Concomitant]
  8. MAGNESIUM OXIDE (MAGNESIUM OXIDE) [Concomitant]
  9. LISINOPRIL [Concomitant]
  10. MULTIVITAMIN [Concomitant]

REACTIONS (2)
  - DYSPNOEA [None]
  - HYPOXIA [None]
